FAERS Safety Report 6594556-0 (Version None)
Quarter: 2010Q1

REPORT INFORMATION
  Report Type: 
  Country: None (occurrence: None)
  Receive Date: 20100222
  Receipt Date: 20100211
  Transmission Date: 20100710
  Serious: Yes (Other)
  Sender: FDA-Public Use
  Company Number: PHHY2009CA51180

PATIENT
  Sex: Female

DRUGS (1)
  1. SANDOSTATIN LAR [Suspect]
     Indication: CARCINOID TUMOUR
     Dosage: 10 MG EVERY 4 WEEKS
     Route: 030
     Dates: start: 20040616

REACTIONS (3)
  - HEADACHE [None]
  - HEPATIC NEOPLASM [None]
  - SURGERY [None]
